FAERS Safety Report 18333966 (Version 3)
Quarter: 2020Q4

REPORT INFORMATION
  Report Type: Spontaneous
  Country: US (occurrence: US)
  Receive Date: 20201001
  Receipt Date: 20201116
  Transmission Date: 20210113
  Serious: No
  Sender: FDA-Public Use
  Company Number: US-JNJFOC-20200944338

PATIENT
  Age: 48 Year
  Sex: Female
  Weight: 98 kg

DRUGS (1)
  1. TOPAMAX [Suspect]
     Active Substance: TOPIRAMATE
     Indication: EPILEPSY
     Route: 048

REACTIONS (2)
  - Product label issue [Unknown]
  - Weight decreased [Unknown]

NARRATIVE: CASE EVENT DATE: 202009
